FAERS Safety Report 9293642 (Version 2)
Quarter: 2016Q3

REPORT INFORMATION
  Report Type: Spontaneous
  Country: US (occurrence: US)
  Receive Date: 20130516
  Receipt Date: 20160805
  Transmission Date: 20161109
  Serious: Yes (Hospitalization, Other)
  Sender: FDA-Public Use
  Company Number: US-009507513-1305USA007042

PATIENT
  Sex: Female

DRUGS (2)
  1. FOSAMAX [Suspect]
     Active Substance: ALENDRONATE SODIUM
     Indication: PRODUCT USED FOR UNKNOWN INDICATION
     Dosage: 35 MG, UNK
     Route: 048
     Dates: start: 20040118, end: 20070716
  2. ALENDRONATE SODIUM. [Suspect]
     Active Substance: ALENDRONATE SODIUM
     Indication: PRODUCT USED FOR UNKNOWN INDICATION
     Dosage: 35 MG, UNK
     Route: 048
     Dates: start: 20080330, end: 20100404

REACTIONS (12)
  - Ecchymosis [Unknown]
  - Rhabdomyolysis [Unknown]
  - Dehydration [Unknown]
  - Hypertension [Unknown]
  - Osteoarthritis [Unknown]
  - Malignant melanoma [Unknown]
  - Ventricular extrasystoles [Unknown]
  - Hyperlipidaemia [Unknown]
  - Haemorrhagic anaemia [Unknown]
  - Hip fracture [Unknown]
  - Hysterectomy [Unknown]
  - Troponin increased [Recovering/Resolving]

NARRATIVE: CASE EVENT DATE: 20100518
